FAERS Safety Report 12369736 (Version 4)
Quarter: 2016Q2

REPORT INFORMATION
  Report Type: Spontaneous
  Country: US (occurrence: US)
  Receive Date: 20160516
  Receipt Date: 20160622
  Transmission Date: 20160815
  Serious: No
  Sender: FDA-Public Use
  Company Number: US-009507513-1605USA000362

PATIENT
  Age: 39 Year
  Sex: Female
  Weight: 54.88 kg

DRUGS (1)
  1. IMPLANON [Suspect]
     Active Substance: ETONOGESTREL
     Indication: CONTRACEPTION
     Dosage: 1 ROD/ 3 YEARS
     Route: 030
     Dates: start: 2010

REACTIONS (7)
  - Device difficult to use [Not Recovered/Not Resolved]
  - Complication of device removal [Not Recovered/Not Resolved]
  - Complication associated with device [Recovered/Resolved]
  - Device deployment issue [Not Recovered/Not Resolved]
  - Incorrect route of drug administration [Not Recovered/Not Resolved]
  - No adverse event [Unknown]
  - Incorrect drug administration duration [Unknown]

NARRATIVE: CASE EVENT DATE: 2010
